FAERS Safety Report 8436071-5 (Version None)
Quarter: 2012Q2

REPORT INFORMATION
  Report Type: 
  Country: None (occurrence: None)
  Receive Date: 20120614
  Receipt Date: 20120229
  Transmission Date: 20120825
  Serious: No
  Sender: FDA-Public Use
  Company Number: US-ASTRAZENECA-2012SE14378

PATIENT
  Age: 83 Year
  Sex: Male

DRUGS (1)
  1. ZOLADEX [Suspect]
     Route: 058

REACTIONS (1)
  - LIMB DISCOMFORT [None]
